FAERS Safety Report 8571297-1 (Version None)
Quarter: 2012Q3

REPORT INFORMATION
  Report Type: 
  Country: None (occurrence: None)
  Receive Date: 20120806
  Receipt Date: 20120730
  Transmission Date: 20120928
  Serious: Yes (Hospitalization, Other)
  Sender: FDA-Public Use
  Company Number: DE-ABBOTT-12P-062-0962134-00

PATIENT
  Age: 24 Year
  Sex: Female
  Weight: 49 kg

DRUGS (5)
  1. PANTOPRAZOLE [Concomitant]
     Indication: CROHN'S DISEASE
     Dates: start: 20100101
  2. PREDNISOLONE [Concomitant]
     Indication: CROHN'S DISEASE
     Dosage: 10 TO 40 MG DAILY
     Dates: start: 20100101, end: 20120101
  3. PREDNISOLONE [Concomitant]
     Dosage: 50 MG DAILY
     Dates: start: 20120712
  4. HUMIRA [Suspect]
     Indication: CROHN'S DISEASE
     Route: 058
     Dates: start: 20100618, end: 20120619
  5. IRON [Concomitant]
     Indication: PRODUCT USED FOR UNKNOWN INDICATION
     Route: 048
     Dates: start: 20100101

REACTIONS (2)
  - COLITIS [None]
  - COLECTOMY [None]
